FAERS Safety Report 12470349 (Version 1)
Quarter: 2016Q2

REPORT INFORMATION
  Report Type: Report from Study
  Country: JP (occurrence: JP)
  Receive Date: 20160616
  Receipt Date: 20160616
  Transmission Date: 20160815
  Serious: Yes (Hospitalization)
  Sender: FDA-Public Use
  Company Number: JP-AMGEN-JPNNI2016076464

PATIENT
  Age: 42 Year
  Sex: Male

DRUGS (4)
  1. DARBEPOETIN ALFA - KHK [Suspect]
     Active Substance: DARBEPOETIN ALFA
     Indication: PRODUCT USED FOR UNKNOWN INDICATION
     Dosage: UNK
     Route: 065
  2. PHOSBLOCK [Suspect]
     Active Substance: FERRIC HYDROXIDE
     Dosage: UNK
     Route: 048
     Dates: start: 20151003, end: 20151226
  3. PHOSBLOCK [Suspect]
     Active Substance: FERRIC HYDROXIDE
     Dosage: UNK
     Route: 048
     Dates: start: 20151226
  4. PHOSBLOCK [Suspect]
     Active Substance: FERRIC HYDROXIDE
     Indication: PRODUCT USED FOR UNKNOWN INDICATION
     Dosage: UNK
     Route: 048
     Dates: start: 20141011, end: 20151003

REACTIONS (4)
  - Angina pectoris [Recovering/Resolving]
  - Hospitalisation [Recovering/Resolving]
  - Hospitalisation [Unknown]
  - Angina pectoris [Recovering/Resolving]

NARRATIVE: CASE EVENT DATE: 20150709
